FAERS Safety Report 10006027 (Version 1)
Quarter: 2014Q1

REPORT INFORMATION
  Report Type: Spontaneous
  Country: FR (occurrence: FR)
  Receive Date: 20140313
  Receipt Date: 20140313
  Transmission Date: 20141002
  Serious: Yes (Hospitalization)
  Sender: FDA-Public Use
  Company Number: FR-ASTRAZENECA-2014SE15869

PATIENT
  Age: 50 Year
  Sex: Female

DRUGS (6)
  1. INEXIUM [Suspect]
     Route: 042
  2. PARACETAMOL [Suspect]
     Route: 040
  3. AUGMENTIN [Suspect]
     Route: 040
  4. LOVENOX [Suspect]
     Route: 058
  5. KABIVEN [Suspect]
     Route: 041
  6. BIONOLYTE [Suspect]
     Route: 041

REACTIONS (2)
  - Renal colic [Not Recovered/Not Resolved]
  - Pyelonephritis [Not Recovered/Not Resolved]
